FAERS Safety Report 24347815 (Version 2)
Quarter: 2024Q3

REPORT INFORMATION
  Report Type: Report from Study
  Country: US (occurrence: US)
  Receive Date: 20240922
  Receipt Date: 20240930
  Transmission Date: 20241017
  Serious: Yes (Other)
  Sender: ABBVIE
  Company Number: US-ABBVIE-5930899

PATIENT
  Sex: Female
  Weight: 75 kg

DRUGS (4)
  1. CREON [Suspect]
     Active Substance: PANCRELIPASE AMYLASE\PANCRELIPASE LIPASE\PANCRELIPASE PROTEASE
     Indication: Pancreatic failure
     Dosage: FORM STRENGTH: 24000 UNIT?3 CAPS EACH MEAL AND 2 CAPS EACH SNACK
     Route: 048
     Dates: start: 20240401
  2. LINZESS [Concomitant]
     Active Substance: LINACLOTIDE
     Indication: Irritable bowel syndrome
     Dosage: 72 MICROGRAM
  3. E P Hormone [Concomitant]
     Indication: Product used for unknown indication
  4. BETAMETHASONE [Concomitant]
     Active Substance: BETAMETHASONE
     Indication: Eczema

REACTIONS (2)
  - Post procedural complication [Recovering/Resolving]
  - Meniscus injury [Recovering/Resolving]

NARRATIVE: CASE EVENT DATE: 20240101
